FAERS Safety Report 17261912 (Version 2)
Quarter: 2020Q1

REPORT INFORMATION
  Report Type: Spontaneous
  Country: US (occurrence: US)
  Receive Date: 20200113
  Receipt Date: 20200128
  Transmission Date: 20200409
  Serious: Yes (Other)
  Sender: FDA-Public Use
  Company Number: US-PFIZER INC-2020012170

PATIENT
  Age: 51 Year
  Sex: Female
  Weight: 104.31 kg

DRUGS (1)
  1. NARDIL [Suspect]
     Active Substance: PHENELZINE SULFATE
     Indication: DEPRESSION
     Dosage: 75 MG, DAILY (15MGX3 AM; 15MGX2 PM)
     Dates: start: 1991

REACTIONS (3)
  - Drug dependence [Unknown]
  - Depression suicidal [Unknown]
  - Depression [Unknown]
